FAERS Safety Report 8792334 (Version 1)
Quarter: 2012Q4

REPORT INFORMATION
  Report Type: Report from Study
  Country: HU (occurrence: HU)
  Receive Date: 20120917
  Receipt Date: 20120917
  Transmission Date: 20130627
  Serious: Yes (Other)
  Sender: FDA-Public Use
  Company Number: HU-ROCHE-1123176

PATIENT
  Sex: Female

DRUGS (1)
  1. XELODA [Suspect]
     Indication: BREAST CANCER METASTATIC
     Dosage: Dose: 2X3
     Route: 065
     Dates: start: 20081126, end: 200907

REACTIONS (2)
  - Deep vein thrombosis [Unknown]
  - Computerised tomogram abnormal [Unknown]
